FAERS Safety Report 7723111-1 (Version None)
Quarter: 2011Q3

REPORT INFORMATION
  Report Type: 
  Country: None (occurrence: None)
  Receive Date: 20110901
  Receipt Date: 20110824
  Transmission Date: 20111222
  Serious: Yes (Other)
  Sender: FDA-Public Use
  Company Number: US-JNJFOC-20110811891

PATIENT
  Age: 84 Year
  Sex: Female

DRUGS (2)
  1. NEURONTIN [Concomitant]
     Route: 065
  2. NUCYNTA [Suspect]
     Indication: PRODUCT USED FOR UNKNOWN INDICATION
     Route: 048

REACTIONS (1)
  - ASTHMA [None]
